FAERS Safety Report 20017803 (Version 1)
Quarter: 2021Q4

REPORT INFORMATION
  Report Type: Report from Study
  Country: IN (occurrence: IN)
  Receive Date: 20211101
  Receipt Date: 20211101
  Transmission Date: 20220303
  Serious: Yes (Death, Other)
  Sender: FDA-Public Use
  Company Number: IN-BRISTOL-MYERS SQUIBB COMPANY-BMS-2021-113729

PATIENT
  Age: 39 Year
  Sex: Female
  Weight: 37 kg

DRUGS (1)
  1. NIVOLUMAB [Suspect]
     Active Substance: NIVOLUMAB
     Indication: Squamous cell carcinoma of head and neck
     Dosage: 111 MILLIGRAM, Q2WK
     Route: 042
     Dates: start: 20210911

REACTIONS (2)
  - Sudden death [Fatal]
  - Drug ineffective [Unknown]
